FAERS Safety Report 23374767 (Version 1)
Quarter: 2024Q1

REPORT INFORMATION
  Report Type: Report from Study
  Country: US (occurrence: US)
  Receive Date: 20240106
  Receipt Date: 20240106
  Transmission Date: 20240410
  Serious: Yes (Other)
  Sender: FDA-Public Use
  Company Number: US-ABBVIE-5570143

PATIENT
  Sex: Female

DRUGS (3)
  1. VENCLEXTA [Suspect]
     Active Substance: VENETOCLAX
     Indication: Plasma cell myeloma
     Dosage: LOWERED THE DOSE TO 4 TABLETS A DAY
     Route: 048
  2. VENCLEXTA [Suspect]
     Active Substance: VENETOCLAX
     Indication: Plasma cell myeloma
     Dosage: TAKE 6 TABLET(S) BY MOUTH (600MG) DAILY CONTINUOUS?CHANGED THE DOSE TO 6 TABLETS DAILY?FORM STREN...
     Route: 048
  3. VENCLEXTA [Suspect]
     Active Substance: VENETOCLAX
     Indication: Plasma cell myeloma
     Dosage: TIME INTERVAL: 0.125 DAYS: USED TO TAKE 8 TABLETS DAILY
     Route: 048

REACTIONS (5)
  - Visual impairment [Unknown]
  - Platelet count increased [Unknown]
  - Dyspnoea [Recovered/Resolved]
  - Off label use [Unknown]
  - Agitation [Recovered/Resolved]
